FAERS Safety Report 5339368-0 (Version None)
Quarter: 2007Q2

REPORT INFORMATION
  Report Type: 
  Country: None (occurrence: None)
  Receive Date: 20070322
  Receipt Date: 20060927
  Transmission Date: 20071010
  Serious: Yes (Other)
  Sender: FDA-Public Use
  Company Number: 200613643BCC

PATIENT
  Age: 75 Year
  Sex: Female
  Weight: 58.0604 kg

DRUGS (5)
  1. ALEVE [Suspect]
     Dosage: SEE IMAGE, ORAL
     Route: 048
     Dates: start: 20060825
  2. ALEVE [Suspect]
     Dosage: SEE IMAGE, ORAL
     Route: 048
     Dates: start: 20060826
  3. ALEVE [Suspect]
     Dosage: SEE IMAGE, ORAL
     Route: 048
     Dates: start: 20060827
  4. ATENOLOL [Concomitant]
  5. EVISTA [Concomitant]

REACTIONS (1)
  - BLOOD PRESSURE INCREASED [None]
